FAERS Safety Report 7887786-9 (Version None)
Quarter: 2011Q4

REPORT INFORMATION
  Report Type: 
  Country: None (occurrence: None)
  Receive Date: 20111103
  Receipt Date: 20111024
  Transmission Date: 20120403
  Serious: Yes (Other)
  Sender: FDA-Public Use
  Company Number: BR-JNJFOC-20111011494

PATIENT
  Age: 78 Year
  Sex: Female
  Weight: 66 kg

DRUGS (10)
  1. REMICADE [Suspect]
     Indication: RHEUMATOID ARTHRITIS
     Route: 042
     Dates: start: 20110622
  2. FOLIC ACID [Suspect]
     Indication: PRODUCT USED FOR UNKNOWN INDICATION
     Route: 065
  3. INDAPAMIDE [Concomitant]
     Indication: THYROID DISORDER
     Route: 065
  4. PREDNISONE [Concomitant]
     Indication: INFLAMMATION
     Route: 065
  5. CARDIZEM [Concomitant]
     Indication: HYPERTENSION
     Route: 065
  6. VITAMIN D2 [Concomitant]
     Route: 065
  7. CALCIUM ALENDRONATE [Concomitant]
     Route: 065
  8. METHOTREXATE [Concomitant]
     Indication: RHEUMATOID ARTHRITIS
     Route: 065
  9. SYNTHROID [Concomitant]
     Indication: HYPERTENSION
     Route: 065
  10. CALCIUM [Concomitant]
     Route: 065

REACTIONS (4)
  - SWELLING [None]
  - JOINT SWELLING [None]
  - ARTHRALGIA [None]
  - THROMBOSIS [None]
